FAERS Safety Report 5362026-3 (Version None)
Quarter: 2007Q2

REPORT INFORMATION
  Report Type: 
  Country: None (occurrence: None)
  Receive Date: 20070615
  Receipt Date: 20070607
  Transmission Date: 20071010
  Serious: No
  Sender: FDA-Public Use
  Company Number: TPA2007A01185

PATIENT
  Age: 64 Year
  Sex: Female
  Weight: 149.687 kg

DRUGS (6)
  1. ACTOS [Suspect]
     Indication: DIABETES MELLITUS NON-INSULIN-DEPENDENT
     Dosage: 30 MG, 1 IN 1 D, PER ORAL
     Route: 048
     Dates: start: 20030101
  2. TOPROL-XL [Concomitant]
  3. LOTREL [Concomitant]
  4. XENICAL [Concomitant]
  5. ONE SOURCE VITAMIN (VITAMINS NOS) [Concomitant]
  6. AMINO ACIDS (AMINO ACIDS) [Concomitant]

REACTIONS (5)
  - ABDOMINAL DISTENSION [None]
  - CAROTID ARTERY OCCLUSION [None]
  - CONDITION AGGRAVATED [None]
  - DYSPNOEA [None]
  - OEDEMA PERIPHERAL [None]
